FAERS Safety Report 4846026-5 (Version None)
Quarter: 2005Q4

REPORT INFORMATION
  Report Type: 
  Country: None (occurrence: None)
  Receive Date: 20051130
  Receipt Date: 20051114
  Transmission Date: 20060501
  Serious: Yes (Other)
  Sender: FDA-Public Use
  Company Number: 8010447

PATIENT
  Age: 36 Year
  Sex: Female

DRUGS (6)
  1. KEPPRA [Suspect]
     Indication: EPILEPSY
     Dosage: 1000 MG /D PO
     Route: 048
     Dates: end: 20050201
  2. KEPPRA [Suspect]
     Indication: EPILEPSY
     Dosage: 1500 MG /D PO
     Route: 048
     Dates: start: 20050201
  3. LEXAPRO [Suspect]
     Indication: DEPRESSION
     Dosage: 20 MG /D PO
     Route: 048
     Dates: end: 20050401
  4. SEROQUEL [Suspect]
     Indication: SOMNOLENCE
     Dosage: 100 MG /D PO
     Route: 048
  5. ASPIRIN [Suspect]
     Dosage: PO
     Route: 048
  6. PRENATAL VITAMINS [Suspect]
     Indication: PREGNANCY
     Dosage: PO
     Route: 048

REACTIONS (4)
  - CAESAREAN SECTION [None]
  - COMPLICATIONS OF MATERNAL EXPOSURE TO THERAPEUTIC DRUGS [None]
  - PLACENTA PRAEVIA [None]
  - PREGNANCY [None]
